FAERS Safety Report 10117314 (Version 1)
Quarter: 2014Q2

REPORT INFORMATION
  Report Type: Spontaneous
  Country: US (occurrence: US)
  Receive Date: 20140425
  Receipt Date: 20140425
  Transmission Date: 20141212
  Serious: No
  Sender: FDA-Public Use
  Company Number: US-GILEAD-2012-0066587

PATIENT
  Sex: Female

DRUGS (2)
  1. ATRIPLA [Suspect]
     Indication: HIV INFECTION
     Dosage: UNK
  2. IBUPROFEN [Concomitant]
     Indication: PAIN

REACTIONS (2)
  - Amnesia [Unknown]
  - Pain [Not Recovered/Not Resolved]
